FAERS Safety Report 7677156-0 (Version None)
Quarter: 2011Q3

REPORT INFORMATION
  Report Type: 
  Country: None (occurrence: None)
  Receive Date: 20110811
  Receipt Date: 20110803
  Transmission Date: 20111222
  Serious: Yes (Other)
  Sender: FDA-Public Use
  Company Number: GB-MPIJNJ-2011-03431

PATIENT

DRUGS (1)
  1. VELCADE [Suspect]
     Indication: MULTIPLE MYELOMA
     Dosage: UNK MG, CYCLIC
     Route: 065
     Dates: start: 20110509, end: 20110720

REACTIONS (3)
  - LEUKAEMIA PLASMACYTIC [None]
  - DRUG INEFFECTIVE [None]
  - DISEASE PROGRESSION [None]
